FAERS Safety Report 16395522 (Version 1)
Quarter: 2019Q2

REPORT INFORMATION
  Report Type: Spontaneous
  Country: US (occurrence: US)
  Receive Date: 20190605
  Receipt Date: 20190605
  Transmission Date: 20190711
  Serious: Yes (Other)
  Sender: FDA-Public Use
  Company Number: US-ENDO PHARMACEUTICALS INC-2019-105225

PATIENT
  Age: 17 Year
  Sex: Female

DRUGS (1)
  1. CLONIDINE HYDROCHLORIDE. [Suspect]
     Active Substance: CLONIDINE HYDROCHLORIDE
     Indication: PRODUCT USED FOR UNKNOWN INDICATION
     Dosage: 0.1 MG, X 160 TABLETS, UNKNOWN
     Route: 065

REACTIONS (4)
  - Hypertension [Recovered/Resolved]
  - Systolic dysfunction [Unknown]
  - Pulmonary oedema [Unknown]
  - Overdose [Unknown]
